FAERS Safety Report 5781898-1 (Version None)
Quarter: 2008Q2

REPORT INFORMATION
  Report Type: 
  Country: None (occurrence: None)
  Receive Date: 20080623
  Receipt Date: 20080612
  Transmission Date: 20081010
  Serious: Yes (Hospitalization)
  Sender: FDA-Public Use
  Company Number: A0734188A

PATIENT
  Age: 62 Year
  Sex: Female

DRUGS (4)
  1. AVANDIA [Suspect]
     Dosage: 4MG PER DAY
     Route: 048
     Dates: start: 20020101
  2. ASPIRIN [Concomitant]
     Dates: start: 20020101
  3. HOMOCYSTEINE (MULTIVIT) [Concomitant]
  4. METOPROLOL [Concomitant]
     Dates: start: 20020101

REACTIONS (2)
  - ACUTE CORONARY SYNDROME [None]
  - ANGINA UNSTABLE [None]
